FAERS Safety Report 7303610-7 (Version None)
Quarter: 2011Q1

REPORT INFORMATION
  Report Type: 
  Country: None (occurrence: None)
  Receive Date: 20110221
  Receipt Date: 20110104
  Transmission Date: 20110831
  Serious: Yes (Hospitalization, Other)
  Sender: FDA-Public Use
  Company Number: US-BAYER-2010-005549

PATIENT
  Age: 67 Year
  Sex: Male
  Weight: 59.864 kg

DRUGS (10)
  1. ANTINEOPLASTIC AGENTS [Suspect]
     Indication: HEPATIC NEOPLASM MALIGNANT
  2. GLIBENCLAMIDE [Concomitant]
     Indication: TYPE 1 DIABETES MELLITUS
     Dosage: 5 MG, BID
     Route: 048
     Dates: start: 20101113
  3. SORAFENIB (RAF KINASE INHIBITOR) [Suspect]
     Indication: HEPATIC NEOPLASM MALIGNANT
     Dosage: 400 MG, BID
     Route: 048
     Dates: start: 20101115, end: 20101121
  4. PROPRANOLOL [Concomitant]
     Indication: HYPERTENSION
     Dosage: 10 MG, TID
     Route: 048
     Dates: start: 20101026
  5. METFORMIN [Concomitant]
     Indication: TYPE 1 DIABETES MELLITUS
     Dosage: 500 MG, BID
     Route: 048
     Dates: start: 20070101
  6. LACTULOSE [Concomitant]
     Indication: HEPATIC CIRRHOSIS
     Dosage: 15 ML, BID
     Route: 048
     Dates: start: 20100318
  7. LACTULOSE [Concomitant]
     Indication: HEPATIC ENCEPHALOPATHY
  8. ISOSORBIDE DINITRATE [Concomitant]
     Indication: ANGINA PECTORIS
     Dosage: 20 MG, QD
     Dates: start: 20070101, end: 20101124
  9. FLUOXETINE HYDROCHLORIDE [Concomitant]
     Indication: DEPRESSION
     Dosage: 20 MG, QD
     Dates: start: 20100903
  10. CENTRUM SILVER [Concomitant]
     Indication: VITAMIN SUPPLEMENTATION
     Dosage: 1 DF, QD
     Route: 048
     Dates: start: 20101001

REACTIONS (7)
  - HEPATIC ENCEPHALOPATHY [None]
  - ALANINE AMINOTRANSFERASE INCREASED [None]
  - ANAEMIA [None]
  - HYPERKALAEMIA [None]
  - ASPARTATE AMINOTRANSFERASE INCREASED [None]
  - HEPATITIS ACUTE [None]
  - GASTRIC HAEMORRHAGE [None]
